FAERS Safety Report 11995928 (Version 2)
Quarter: 2016Q2

REPORT INFORMATION
  Report Type: Spontaneous
  Country: US (occurrence: US)
  Receive Date: 20160203
  Receipt Date: 20160527
  Transmission Date: 20160815
  Serious: Yes (Death, Life-Threatening, Hospitalization, Other)
  Sender: FDA-Public Use
  Company Number: US-009507513-1602USA001365

PATIENT
  Sex: Male
  Weight: 114.74 kg

DRUGS (5)
  1. BYETTA [Suspect]
     Active Substance: EXENATIDE
     Indication: TYPE 2 DIABETES MELLITUS
     Dosage: 5 MICROGRAM, TWICE DAILY
     Dates: start: 20091110, end: 20091210
  2. JANUVIA [Suspect]
     Active Substance: SITAGLIPTIN PHOSPHATE
     Indication: DIABETIC NEUROPATHY
  3. JANUVIA [Suspect]
     Active Substance: SITAGLIPTIN PHOSPHATE
     Indication: TYPE 2 DIABETES MELLITUS
     Dosage: 100 MG, DAILY
     Route: 048
     Dates: start: 20070329, end: 20091024
  4. JANUVIA [Suspect]
     Active Substance: SITAGLIPTIN PHOSPHATE
     Indication: DIABETIC NEUROPATHY
  5. JANUVIA [Suspect]
     Active Substance: SITAGLIPTIN PHOSPHATE
     Indication: DIABETES MELLITUS INADEQUATE CONTROL
     Dosage: 100 MG, DAILY
     Route: 048
     Dates: start: 20120612

REACTIONS (25)
  - Pulmonary embolism [Unknown]
  - Emotional distress [Unknown]
  - Diabetic complication [Unknown]
  - Acne [Unknown]
  - Wheezing [Unknown]
  - Radiotherapy [Unknown]
  - Vena cava filter insertion [Unknown]
  - Depression [Unknown]
  - Anxiety [Unknown]
  - Metastases to lymph nodes [Unknown]
  - Diarrhoea [Unknown]
  - Normochromic normocytic anaemia [Unknown]
  - Pancreatic carcinoma metastatic [Fatal]
  - Localised infection [Unknown]
  - Fear of death [Unknown]
  - Metastases to small intestine [Unknown]
  - Cholelithiasis [Unknown]
  - Arthritis [Not Recovered/Not Resolved]
  - Pleural effusion [Unknown]
  - Constipation [Unknown]
  - Hepatic steatosis [Unknown]
  - Metastases to liver [Unknown]
  - Metastases to pleura [Unknown]
  - Dehydration [Unknown]
  - Treatment noncompliance [Unknown]

NARRATIVE: CASE EVENT DATE: 201103
